FAERS Safety Report 7735124-4 (Version None)
Quarter: 2011Q3

REPORT INFORMATION
  Report Type: 
  Country: None (occurrence: None)
  Receive Date: 20110907
  Receipt Date: 20110831
  Transmission Date: 20111222
  Serious: Yes (Hospitalization)
  Sender: FDA-Public Use
  Company Number: JP-ROCHE-682781

PATIENT
  Sex: Female
  Weight: 58 kg

DRUGS (18)
  1. TOCILIZUMAB [Suspect]
     Indication: CASTLEMAN'S DISEASE
     Route: 041
     Dates: start: 20090817, end: 20090831
  2. TOCILIZUMAB [Suspect]
     Route: 041
     Dates: start: 20110509, end: 20110523
  3. TOCILIZUMAB [Suspect]
     Route: 041
     Dates: start: 20110606, end: 20110714
  4. RELENZA [Concomitant]
     Dosage: DOSE FORM: RESPIRATORY TONIC
     Route: 055
     Dates: end: 20090904
  5. RABEPRAZOLE SODIUM [Concomitant]
     Dosage: DOSE FORM: PERORAL AGENT
     Route: 048
     Dates: start: 20091208, end: 20110208
  6. MUCOSTA [Concomitant]
     Dosage: DOSE FORM: PERORAL AGENT
     Route: 048
     Dates: start: 20091228, end: 20110208
  7. FAMOTIDINE [Concomitant]
     Dosage: DRUG: BLOSTAR M.
     Route: 048
     Dates: start: 20090723, end: 20100607
  8. FAMOTIDINE [Concomitant]
     Route: 048
     Dates: start: 20110209
  9. ZYRTEC [Concomitant]
     Route: 048
     Dates: start: 20100315
  10. PREDNISOLONE [Concomitant]
     Route: 048
     Dates: start: 20090831, end: 20110605
  11. PREDNISOLONE [Concomitant]
     Route: 048
     Dates: start: 20110606
  12. TOCILIZUMAB [Suspect]
     Route: 041
     Dates: start: 20090914, end: 20091013
  13. TOCILIZUMAB [Suspect]
     Route: 041
     Dates: start: 20091019, end: 20091019
  14. TOCILIZUMAB [Suspect]
     Route: 041
     Dates: start: 20110728
  15. PREDNISOLONE [Concomitant]
     Dosage: DOSE FORM: ORAL FORMULATION (NOT OTHERWISE SPECIFIED)
     Route: 048
     Dates: start: 20090723, end: 20090830
  16. TOCILIZUMAB [Suspect]
     Route: 041
     Dates: start: 20091026, end: 20110425
  17. MUCOSTA [Concomitant]
     Route: 048
     Dates: start: 20110322
  18. FAMOTIDINE [Concomitant]
     Dosage: DRUG: BLOSTAR M
     Dates: start: 20110209

REACTIONS (5)
  - GASTROENTERITIS [None]
  - INFLUENZA [None]
  - BLADDER CANCER [None]
  - PRURITUS [None]
  - COLONIC POLYP [None]
